FAERS Safety Report 19517578 (Version 2)
Quarter: 2021Q3

REPORT INFORMATION
  Report Type: Report from Study
  Country: None (occurrence: CA)
  Receive Date: 20210712
  Receipt Date: 20210805
  Transmission Date: 20211014
  Serious: Yes (Other)
  Sender: FDA-Public Use
  Company Number: CA-ABBVIE-21K-028-3985227-00

PATIENT
  Age: 42 Year
  Sex: Female
  Weight: 69.92 kg

DRUGS (1)
  1. HUMIRA [Suspect]
     Active Substance: ADALIMUMAB
     Indication: CROHN^S DISEASE
     Route: 058
     Dates: start: 20141009

REACTIONS (17)
  - Abdominal pain [Recovered/Resolved]
  - Hepatic lesion [Unknown]
  - Constipation [Unknown]
  - Diarrhoea [Unknown]
  - Splenic granuloma [Unknown]
  - Ovarian cyst [Unknown]
  - Abdominal distension [Recovered/Resolved]
  - Abdominal adhesions [Not Recovered/Not Resolved]
  - Gastrointestinal injury [Recovered/Resolved]
  - Live birth [Unknown]
  - Splenic lesion [Unknown]
  - Infection [Unknown]
  - Nausea [Recovered/Resolved]
  - Vomiting [Recovered/Resolved]
  - Obstruction [Recovered/Resolved]
  - Hepatic cyst [Unknown]
  - Maternal exposure during pregnancy [Unknown]

NARRATIVE: CASE EVENT DATE: 202004
